FAERS Safety Report 22211604 (Version 3)
Quarter: 2023Q2

REPORT INFORMATION
  Report Type: Report from Study
  Country: RO (occurrence: RO)
  Receive Date: 20230414
  Receipt Date: 20230516
  Transmission Date: 20230721
  Serious: Yes (Death, Other)
  Sender: FDA-Public Use
  Company Number: RO-ABBVIE-4725790

PATIENT
  Age: 69 Year
  Sex: Male

DRUGS (9)
  1. CARBIDOPA\LEVODOPA [Suspect]
     Active Substance: CARBIDOPA\LEVODOPA
     Indication: Parkinson^s disease
     Dosage: DM=8.00 DC=2.80 ED=1.80 NRED=0; DMN=0.00 DCN=0.00 EDN=0.00 NREDN=0
     Route: 050
     Dates: start: 20150831
  2. CARBIDOPA\LEVODOPA [Suspect]
     Active Substance: CARBIDOPA\LEVODOPA
  3. Baneocin [Concomitant]
     Indication: Decubitus ulcer
     Dosage: THIN LAYER ON THE AFFECTED AREAS
     Route: 061
     Dates: start: 20230420
  4. METAMIZOLE SODIUM [Concomitant]
     Active Substance: METAMIZOLE SODIUM
     Indication: Pneumonia
     Dosage: 1/2 X 2 /DAY
     Route: 030
     Dates: start: 20230418, end: 20230425
  5. BENZALKONIUM CHLORIDE\CHLORHEXIDINE [Concomitant]
     Active Substance: BENZALKONIUM CHLORIDE\CHLORHEXIDINE
     Indication: Ulcer
     Dosage: 2 UNIT
     Dates: start: 20230409
  6. BENZALKONIUM CHLORIDE\CHLORHEXIDINE [Concomitant]
     Active Substance: BENZALKONIUM CHLORIDE\CHLORHEXIDINE
     Indication: Ulcer
     Dosage: 2 UNIT
     Dates: start: 20230409
  7. Kadermin [Concomitant]
     Indication: Ulcer
     Dosage: 2 UNIT
     Dates: start: 20230409
  8. Kadermin [Concomitant]
     Indication: Ulcer
     Dosage: 2 UNIT
     Dates: start: 20230409
  9. CEFTRIAXONE SODIUM [Concomitant]
     Active Substance: CEFTRIAXONE SODIUM
     Indication: Pneumonia
     Dosage: 2 GRAM
     Route: 030
     Dates: start: 20230418, end: 20230425

REACTIONS (11)
  - Cardio-respiratory arrest [Fatal]
  - Hypophagia [Recovering/Resolving]
  - Decubitus ulcer [Recovering/Resolving]
  - Immobilisation syndrome [Recovering/Resolving]
  - Pertussis [Recovering/Resolving]
  - Food refusal [Recovering/Resolving]
  - Pyrexia [Recovering/Resolving]
  - Decubitus ulcer [Recovering/Resolving]
  - Pneumonia aspiration [Recovering/Resolving]
  - Hypothermia [Recovering/Resolving]
  - Apathy [Recovering/Resolving]

NARRATIVE: CASE EVENT DATE: 20230404
